FAERS Safety Report 12875827 (Version 1)
Quarter: 2016Q4

REPORT INFORMATION
  Report Type: Spontaneous
  Country: US (occurrence: US)
  Receive Date: 20161024
  Receipt Date: 20161024
  Transmission Date: 20170207
  Serious: No
  Sender: FDA-Public Use
  Company Number: US-JAZZ-2016-US-015018

PATIENT
  Sex: Male

DRUGS (27)
  1. CALCIUM ANTACID [Concomitant]
     Active Substance: CALCIUM CARBONATE
  2. MULTIVITAMINS [Concomitant]
     Active Substance: VITAMINS
  3. PRAMIPEXOLE. [Concomitant]
     Active Substance: PRAMIPEXOLE
  4. XYREM [Suspect]
     Active Substance: SODIUM OXYBATE
     Indication: NARCOLEPSY
     Dosage: 1.5 G, BID
     Route: 048
     Dates: start: 201504, end: 201505
  5. XYREM [Suspect]
     Active Substance: SODIUM OXYBATE
     Dosage: DOSE ADJUSTMENTS
     Route: 048
     Dates: start: 201505, end: 201602
  6. METOPROLOL SUCCINATE. [Concomitant]
     Active Substance: METOPROLOL SUCCINATE
  7. ASPIRIN. [Concomitant]
     Active Substance: ASPIRIN
  8. HUMIRA [Concomitant]
     Active Substance: ADALIMUMAB
  9. XYREM [Suspect]
     Active Substance: SODIUM OXYBATE
     Dosage: 4.5 G, FIRST DOSE
     Route: 048
     Dates: start: 201602
  10. DIVALPROEX SODIUM. [Concomitant]
     Active Substance: DIVALPROEX SODIUM
  11. MELOXICAM. [Concomitant]
     Active Substance: MELOXICAM
  12. RISPERDAL [Concomitant]
     Active Substance: RISPERIDONE
  13. AZATHIOPRINE. [Concomitant]
     Active Substance: AZATHIOPRINE
  14. RISPERIDONE. [Concomitant]
     Active Substance: RISPERIDONE
  15. MUCINEX [Concomitant]
     Active Substance: GUAIFENESIN
  16. NEURONTIN [Concomitant]
     Active Substance: GABAPENTIN
  17. NUVIGIL [Concomitant]
     Active Substance: ARMODAFINIL
  18. LISINOPRIL. [Concomitant]
     Active Substance: LISINOPRIL
  19. METOPROLOL TARTRATE. [Concomitant]
     Active Substance: METOPROLOL TARTRATE
  20. VITAMIN D3 [Concomitant]
     Active Substance: CHOLECALCIFEROL
  21. ATORVASTATIN [Concomitant]
     Active Substance: ATORVASTATIN
  22. NITROSTAT [Concomitant]
     Active Substance: NITROGLYCERIN
  23. PANTOPRAZOLE SODIUM. [Concomitant]
     Active Substance: PANTOPRAZOLE SODIUM
  24. SULFASALAZINE. [Concomitant]
     Active Substance: SULFASALAZINE
  25. XYREM [Suspect]
     Active Substance: SODIUM OXYBATE
     Dosage: 4 G, SECOND DOSE
     Route: 048
     Dates: start: 201602
  26. AMIODARONE HCL [Concomitant]
     Active Substance: AMIODARONE HYDROCHLORIDE
  27. CALCIUM CITRATE + D [Concomitant]

REACTIONS (1)
  - Nasopharyngitis [Unknown]
